FAERS Safety Report 11246983 (Version 2)
Quarter: 2015Q3

REPORT INFORMATION
  Report Type: Spontaneous
  Country: JP (occurrence: JP)
  Receive Date: 20150708
  Receipt Date: 20150902
  Transmission Date: 20151125
  Serious: Yes (Hospitalization)
  Sender: FDA-Public Use
  Company Number: JP-JNJFOC-20150702366

PATIENT
  Age: 76 Year
  Sex: Female
  Weight: 46 kg

DRUGS (4)
  1. CANAGLU [Suspect]
     Active Substance: CANAGLIFLOZIN
     Indication: TYPE 2 DIABETES MELLITUS
     Route: 048
     Dates: start: 20141029, end: 20150629
  2. AMARYL [Concomitant]
     Active Substance: GLIMEPIRIDE
     Indication: TYPE 2 DIABETES MELLITUS
     Dosage: START DATE: 3 MONTHS OR BEFORE THE ADMINISTRATION OF CANGLIFLOZIN.
     Route: 048
     Dates: end: 20150629
  3. METGLUCO [Concomitant]
     Active Substance: METFORMIN HYDROCHLORIDE
     Indication: TYPE 2 DIABETES MELLITUS
     Dosage: START DATE: 3 MONTHS OR BEFORE THE ADMINISTRATION OF CANGLIFLOZIN.
     Route: 048
  4. EQUA (VILDAGLIPTIN) [Concomitant]
     Active Substance: VILDAGLIPTIN
     Indication: TYPE 2 DIABETES MELLITUS
     Dosage: START DATE: 3 MONTHS OR BEFORE THE ADMINISTRATION OF CANGLIFLOZIN.
     Route: 048
     Dates: end: 20150629

REACTIONS (1)
  - Cerebrovascular stenosis [Recovered/Resolved]

NARRATIVE: CASE EVENT DATE: 201506
